FAERS Safety Report 16757290 (Version 1)
Quarter: 2019Q3

REPORT INFORMATION
  Report Type: Spontaneous
  Country: AR (occurrence: AR)
  Receive Date: 20190829
  Receipt Date: 20190829
  Transmission Date: 20191005
  Serious: Yes (Other)
  Sender: FDA-Public Use
  Company Number: AR-AMGEN-ARGSP2015056681

PATIENT
  Age: 56 Year
  Sex: Female

DRUGS (4)
  1. BRONA [Concomitant]
     Dosage: UNK
  2. ENBREL [Suspect]
     Active Substance: ETANERCEPT
     Indication: RHEUMATOID ARTHRITIS
     Dosage: 50 MG, WEEKLY
     Route: 065
     Dates: start: 20090504, end: 201502
  3. METHOTREXAT [METHOTREXATE] [Concomitant]
     Active Substance: METHOTREXATE
     Dosage: UNK
  4. BRONA [Concomitant]
     Dosage: UNK

REACTIONS (3)
  - Localised infection [Unknown]
  - Foot deformity [Unknown]
  - Hepatitis B [Recovering/Resolving]

NARRATIVE: CASE EVENT DATE: 201502
